FAERS Safety Report 8913419 (Version 1)
Quarter: 2012Q4

REPORT INFORMATION
  Report Type: Spontaneous
  Country: US (occurrence: None)
  Receive Date: 20121114
  Receipt Date: 20121114
  Transmission Date: 20130627
  Serious: Yes (Hospitalization)
  Sender: FDA-Public Use
  Company Number: 2012UCU075000838

PATIENT
  Age: 63 Year
  Sex: Female
  Weight: 87 kg

DRUGS (17)
  1. CIMZIA [Suspect]
     Indication: CROHN^S DISEASE
     Dates: start: 20101121, end: 20110213
  2. CIMZIA [Suspect]
     Indication: CROHN^S DISEASE
     Dates: start: 20100926, end: 20101107
  3. CIMZIA [Suspect]
     Indication: CROHN^S DISEASE
     Dates: start: 20091201, end: 20100912
  4. VANCOMYCIN [Concomitant]
  5. MESALAMINE [Concomitant]
  6. CIPROFLOXACIN [Concomitant]
  7. METRONIDAZOLE [Concomitant]
  8. RIFAXIMIN [Concomitant]
  9. PREDNISONE [Concomitant]
  10. BUDESONIDE [Concomitant]
  11. AZATHIOPRINE [Concomitant]
  12. 6-MP [Concomitant]
  13. METHOTREXATE [Concomitant]
  14. CYCLOSPORINE [Concomitant]
  15. INFLIXIMAB [Concomitant]
  16. ADALIMUMAB [Concomitant]
  17. NATALIZUMAB [Concomitant]

REACTIONS (2)
  - Nausea [None]
  - Vomiting [None]
